FAERS Safety Report 7962191-5 (Version None)
Quarter: 2011Q4

REPORT INFORMATION
  Report Type: 
  Country: None (occurrence: None)
  Receive Date: 20111207
  Receipt Date: 20111128
  Transmission Date: 20120403
  Serious: Yes (Other)
  Sender: FDA-Public Use
  Company Number: PHEH2011US010332

PATIENT
  Sex: Male

DRUGS (4)
  1. VALTURNA [Suspect]
     Dosage: 1 DF (150/160MG), QD
     Dates: start: 20111123, end: 20111126
  2. LANSOPRAZOLE [Concomitant]
     Dosage: 30 MG, QD
  3. METOPROLOL TARTRATE [Concomitant]
  4. CRESTOR [Concomitant]
     Dosage: 5 MG, UNK

REACTIONS (2)
  - PAIN IN JAW [None]
  - ATRIAL FIBRILLATION [None]
